FAERS Safety Report 8776041 (Version 1)
Quarter: 2012Q4

REPORT INFORMATION
  Report Type: 
  Country: GB (occurrence: GB)
  Receive Date: 20120910
  Receipt Date: 20120910
  Transmission Date: 20130627
  Serious: Yes (Other)
  Sender: FDA-Public Use
  Company Number: GB-B.I. PHARMACEUTICALS,INC./RIDGEFIELD-2012-UK-01170UK

PATIENT
  Age: 69 Year
  Sex: Male

DRUGS (6)
  1. TRAJENTA [Suspect]
     Indication: DIABETES MELLITUS
     Dosage: 5 mg
     Route: 048
     Dates: start: 20120803, end: 20120810
  2. GLICLAZIDE [Concomitant]
     Indication: DIABETES MELLITUS
     Dosage: 160 mg
     Route: 048
     Dates: start: 20100519
  3. LISINOPRIL [Concomitant]
     Indication: HYPERTENSION
     Dosage: 20 mg
     Route: 048
     Dates: start: 20120803
  4. METFORMIN [Concomitant]
     Indication: DIABETES MELLITUS
     Dosage: 1 g
     Route: 048
     Dates: start: 20100601
  5. OMEPRAZOLE [Concomitant]
     Dosage: 10 mg
     Route: 048
     Dates: start: 20120625
  6. TAMSULOSIN [Concomitant]
     Indication: BLADDER DISORDER
     Dosage: 400 mcg
     Route: 048
     Dates: start: 20120130

REACTIONS (1)
  - Rash [Recovered/Resolved]
